FAERS Safety Report 18206709 (Version 2)
Quarter: 2020Q3

REPORT INFORMATION
  Report Type: Spontaneous
  Country: VN (occurrence: VN)
  Receive Date: 20200828
  Receipt Date: 20200917
  Transmission Date: 20201103
  Serious: Yes (Other)
  Sender: FDA-Public Use
  Company Number: VN-ROCHE-2667683

PATIENT
  Age: 38 Year
  Sex: Male

DRUGS (1)
  1. ACTILYSE [Suspect]
     Active Substance: ALTEPLASE
     Indication: ISCHAEMIC STROKE
     Route: 065
     Dates: start: 2019, end: 2019

REACTIONS (2)
  - Hemiplegia [Unknown]
  - Cerebral artery occlusion [Recovered/Resolved]

NARRATIVE: CASE EVENT DATE: 2019
